FAERS Safety Report 9413377 (Version 1)
Quarter: 2013Q3

REPORT INFORMATION
  Report Type: Spontaneous
  Country: US (occurrence: None)
  Receive Date: 20130709
  Receipt Date: 20130709
  Transmission Date: 20140515
  Serious: Yes (Other)
  Sender: FDA-Public Use
  Company Number: 09-AUR-10112

PATIENT
  Age: 56 Year
  Sex: Female

DRUGS (2)
  1. METFORMIN (METFORMIN) [Suspect]
     Indication: PRODUCT USED FOR UNKNOWN INDICATION
     Route: 048
  2. ZOLPIDEM (ZOLPIDEM) [Suspect]
     Indication: PRODUCT USED FOR UNKNOWN INDICATION
     Route: 048

REACTIONS (9)
  - Metabolic acidosis [None]
  - Depressed level of consciousness [None]
  - Tachypnoea [None]
  - Agitation [None]
  - Hypotension [None]
  - Hypothermia [None]
  - Suicide attempt [None]
  - Intentional overdose [None]
  - Haemodialysis [None]
